FAERS Safety Report 16980159 (Version 1)
Quarter: 2019Q4

REPORT INFORMATION
  Report Type: Spontaneous
  Country: US (occurrence: US)
  Receive Date: 20191031
  Receipt Date: 20191031
  Transmission Date: 20200122
  Serious: No
  Sender: FDA-Public Use
  Company Number: US-AMNEAL PHARMACEUTICALS-2019-AMRX-01777

PATIENT
  Age: 49 Year
  Sex: Female
  Weight: 75 kg

DRUGS (2)
  1. PREGABALIN. [Suspect]
     Active Substance: PREGABALIN
     Indication: NEURALGIA
     Dosage: 150 MILLIGRAM, TID
     Route: 048
     Dates: start: 20190817, end: 20190827
  2. PREGABALIN. [Suspect]
     Active Substance: PREGABALIN
     Indication: NERVE INJURY

REACTIONS (5)
  - Muscle spasms [Recovered/Resolved]
  - Burning sensation [Recovered/Resolved]
  - Pain [Recovered/Resolved]
  - Drug ineffective [Not Recovered/Not Resolved]
  - Muscle tightness [Recovered/Resolved]

NARRATIVE: CASE EVENT DATE: 20190817
